FAERS Safety Report 7075391-6 (Version None)
Quarter: 2010Q4

REPORT INFORMATION
  Report Type: 
  Country: None (occurrence: None)
  Receive Date: 20101030
  Receipt Date: 20100915
  Transmission Date: 20110411
  Serious: No
  Sender: FDA-Public Use
  Company Number: US-WYE-H17573810

PATIENT
  Age: 28 Year
  Sex: Female

DRUGS (1)
  1. PRISTIQ [Suspect]
     Dates: start: 20100701, end: 20100801

REACTIONS (4)
  - CONDITION AGGRAVATED [None]
  - MOOD SWINGS [None]
  - NAUSEA [None]
  - WEIGHT INCREASED [None]
